FAERS Safety Report 17451887 (Version 1)
Quarter: 2020Q1

REPORT INFORMATION
  Report Type: Spontaneous
  Country: FR (occurrence: FR)
  Receive Date: 20200224
  Receipt Date: 20200224
  Transmission Date: 20200409
  Serious: Yes (Other)
  Sender: FDA-Public Use
  Company Number: FR-PFIZER INC-2020075221

PATIENT
  Age: 72 Year
  Sex: Female
  Weight: 81 kg

DRUGS (13)
  1. TEICOPLANINE [Suspect]
     Active Substance: TEICOPLANIN
     Dosage: 500 MG, DAILY
     Route: 042
  2. TEICOPLANINE [Suspect]
     Active Substance: TEICOPLANIN
     Dosage: 400 MG, DAILY
     Route: 042
  3. TEICOPLANINE [Suspect]
     Active Substance: TEICOPLANIN
     Dosage: 200 MG, DAILY
     Route: 042
  4. ARIMIDEX [Concomitant]
     Active Substance: ANASTROZOLE
     Indication: BREAST CANCER
     Dosage: 1 MG, 1X/DAY
     Route: 048
  5. ESOMEPRAZOLE. [Concomitant]
     Active Substance: ESOMEPRAZOLE MAGNESIUM
     Dosage: 20 MG, 1X/DAY
     Route: 048
  6. GLICLAZIDE [Concomitant]
     Active Substance: GLICLAZIDE
     Indication: TYPE 2 DIABETES MELLITUS
     Dosage: 60 MG, 1X/DAY
     Route: 048
  7. BYDUREON [Concomitant]
     Active Substance: EXENATIDE
     Indication: TYPE 2 DIABETES MELLITUS
     Dosage: 2 MG, WEEKLY
     Route: 058
  8. TARDYFERON [Concomitant]
     Active Substance: FERROUS SULFATE
     Indication: ANAEMIA
     Dosage: 80 MG, 1X/DAY
     Route: 048
  9. CLINDAMYCIN HCL [Suspect]
     Active Substance: CLINDAMYCIN HYDROCHLORIDE
     Indication: OSTEOMYELITIS
     Dosage: 1800 MG, 1X/DAY
     Route: 048
     Dates: start: 20191113, end: 20200110
  10. CANDESARTAN CILEXETIL. [Concomitant]
     Active Substance: CANDESARTAN CILEXETIL
     Indication: HYPERTENSION
     Dosage: 8 MG, 1X/DAY
     Route: 048
  11. METFORMINE [METFORMIN] [Concomitant]
     Active Substance: METFORMIN HYDROCHLORIDE
     Indication: TYPE 2 DIABETES MELLITUS
     Dosage: 1500 MG, 1X/DAY
     Route: 048
  12. TEICOPLANINE [Suspect]
     Active Substance: TEICOPLANIN
     Indication: OSTEOMYELITIS
     Dosage: 1000 MG, 2X/DAY
     Route: 042
     Dates: start: 20131119, end: 20200108
  13. ABASAGLAR [Concomitant]
     Active Substance: INSULIN GLARGINE
     Indication: TYPE 2 DIABETES MELLITUS
     Dosage: 40 IU, 1X/DAY
     Route: 058

REACTIONS (3)
  - Condition aggravated [Not Recovered/Not Resolved]
  - Acute kidney injury [Not Recovered/Not Resolved]
  - Off label use [Unknown]

NARRATIVE: CASE EVENT DATE: 20191113
